FAERS Safety Report 10094274 (Version 1)
Quarter: 2014Q2

REPORT INFORMATION
  Report Type: Spontaneous
  Country: US (occurrence: US)
  Receive Date: 20140422
  Receipt Date: 20140422
  Transmission Date: 20141212
  Serious: Yes (Other)
  Sender: FDA-Public Use
  Company Number: US-AMGEN INC.-USASP2014027715

PATIENT
  Age: 80 Year
  Sex: Male

DRUGS (12)
  1. ARANESP [Suspect]
     Indication: MYELODYSPLASTIC SYNDROME
     Route: 065
  2. ASPIRIN [Concomitant]
  3. XANAX [Concomitant]
  4. AMARYL [Concomitant]
  5. LISINOPRIL [Concomitant]
  6. ALTOPREV [Concomitant]
  7. GLUCOPHAGE [Concomitant]
  8. MICARDIS [Concomitant]
  9. TOPROL [Concomitant]
  10. MINOXIDIL [Concomitant]
  11. PRILOSEC                           /00661201/ [Concomitant]
  12. HYTRIN [Concomitant]

REACTIONS (3)
  - Squamous cell carcinoma [Unknown]
  - Actinic keratosis [Unknown]
  - Basal cell carcinoma [Unknown]
